FAERS Safety Report 8370098-7 (Version None)
Quarter: 2012Q2

REPORT INFORMATION
  Report Type: 
  Country: None (occurrence: None)
  Receive Date: 20120518
  Receipt Date: 20120508
  Transmission Date: 20120825
  Serious: Yes (Other)
  Sender: FDA-Public Use
  Company Number: US-JNJFOC-20120508616

PATIENT

DRUGS (9)
  1. VINCRISTINE [Suspect]
     Indication: B-CELL LYMPHOMA
     Route: 042
  2. CYCLOPHOSPHAMIDE [Suspect]
     Indication: B-CELL LYMPHOMA
     Route: 042
  3. PREDNISONE [Suspect]
     Indication: B-CELL LYMPHOMA
     Route: 048
  4. CETIRIZINE [Concomitant]
     Route: 065
  5. OFATUMUMAB [Suspect]
     Indication: B-CELL LYMPHOMA
     Route: 042
  6. DOXORUBICIN HCL [Suspect]
     Indication: B-CELL LYMPHOMA
     Route: 042
  7. ACETAMINOPHEN [Concomitant]
     Route: 065
  8. OFATUMUMAB [Suspect]
     Route: 042
  9. GLUCOCORTICOIDS [Concomitant]
     Route: 065

REACTIONS (22)
  - ALOPECIA [None]
  - INFECTION [None]
  - DYSPEPSIA [None]
  - HEADACHE [None]
  - OEDEMA PERIPHERAL [None]
  - INFUSION RELATED REACTION [None]
  - POLYNEUROPATHY [None]
  - FATIGUE [None]
  - VOMITING [None]
  - LEUKOPENIA [None]
  - CONSTIPATION [None]
  - PYREXIA [None]
  - DYSGEUSIA [None]
  - RESPIRATORY TRACT INFECTION [None]
  - NAUSEA [None]
  - RASH [None]
  - URTICARIA [None]
  - NEUTROPENIA [None]
  - DIARRHOEA [None]
  - DYSPNOEA [None]
  - OROPHARYNGEAL PAIN [None]
  - COUGH [None]
